FAERS Safety Report 9868991 (Version 1)
Quarter: 2014Q1

REPORT INFORMATION
  Report Type: Report from Study
  Country: US (occurrence: US)
  Receive Date: 20140205
  Receipt Date: 20140205
  Transmission Date: 20141002
  Serious: Yes (Other)
  Sender: FDA-Public Use
  Company Number: US-ROCHE-1342874

PATIENT
  Sex: Male

DRUGS (6)
  1. LUCENTIS [Suspect]
     Indication: MACULAR DEGENERATION
     Route: 065
  2. COUMADIN [Concomitant]
     Indication: CEREBROVASCULAR ACCIDENT
  3. LIPITOR [Concomitant]
  4. TYLENOL [Concomitant]
     Indication: ARTHRITIS
  5. FOLIC ACID [Concomitant]
  6. ATEN [Concomitant]
     Indication: BLOOD PRESSURE

REACTIONS (9)
  - Cerebrovascular accident [Unknown]
  - Hip fracture [Unknown]
  - Memory impairment [Unknown]
  - Visual impairment [Unknown]
  - Musculoskeletal stiffness [Recovering/Resolving]
  - Arthritis [Unknown]
  - Balance disorder [Unknown]
  - Hypertension [Unknown]
  - Hyperchlorhydria [Unknown]
